FAERS Safety Report 10249742 (Version 1)
Quarter: 2014Q2

REPORT INFORMATION
  Report Type: Report from Study
  Country: JP (occurrence: JP)
  Receive Date: 20140620
  Receipt Date: 20140620
  Transmission Date: 20141212
  Serious: Yes (Other)
  Sender: FDA-Public Use
  Company Number: JP-BAXTER-2014BAX033408

PATIENT
  Age: 10 Month
  Sex: Male

DRUGS (6)
  1. GAMMAGARD FOR INJECTION 2.5G [Suspect]
     Indication: KAWASAKI^S DISEASE
     Dosage: 1 OR 2 G/KG WITHIN THE FIRST 9 DAYS OF KAWASAKI DISEASE
     Route: 042
  2. GAMMAGARD FOR INJECTION 2.5G [Suspect]
     Dosage: 1 OR 2 G/KG
     Route: 042
  3. GAMMAGARD FOR INJECTION 2.5G [Suspect]
     Dosage: 1 OR 2 G/KG
     Route: 042
  4. GAMMAGARD FOR INJECTION 2.5G [Suspect]
     Dosage: 1 OR 2 G/KG
     Route: 042
  5. ACETYLSALICYLIC ACID [Suspect]
     Indication: PRODUCT USED FOR UNKNOWN INDICATION
     Route: 048
  6. METHYLPREDNISOLONE [Suspect]
     Indication: STEROID THERAPY
     Route: 042

REACTIONS (1)
  - Drug resistance [Recovered/Resolved]
